FAERS Safety Report 9412141 (Version 1)
Quarter: 2013Q3

REPORT INFORMATION
  Report Type: Spontaneous
  Country: US (occurrence: None)
  Receive Date: 20130719
  Receipt Date: 20130719
  Transmission Date: 20140515
  Serious: Yes (Other)
  Sender: FDA-Public Use
  Company Number: None

PATIENT
  Sex: Female

DRUGS (2)
  1. BUPROPION XL [Suspect]
     Indication: BIPOLAR I DISORDER
     Route: 048
     Dates: start: 200904, end: 200905
  2. BUPROPION XL [Suspect]
     Indication: EATING DISORDER
     Route: 048
     Dates: start: 200904, end: 200905

REACTIONS (2)
  - Product substitution issue [None]
  - Therapeutic response decreased [None]
